FAERS Safety Report 7875728-1 (Version None)
Quarter: 2011Q4

REPORT INFORMATION
  Report Type: 
  Country: None (occurrence: None)
  Receive Date: 20111031
  Receipt Date: 20111021
  Transmission Date: 20120403
  Serious: Yes (Hospitalization, Other)
  Sender: FDA-Public Use
  Company Number: US-BAYER-2011-104518

PATIENT
  Age: 17 Year
  Sex: Female

DRUGS (16)
  1. PREDNISONE [Concomitant]
  2. HYDROCODONE BITARTRATE AND ACETAMINOPHEN [Concomitant]
  3. YAZ [Suspect]
     Indication: PREMENSTRUAL SYNDROME
     Dosage: UNK
     Dates: start: 20080101, end: 20090101
  4. AMOXICILLIN [Concomitant]
  5. DROSPIRENONE AND ETHINYL ESTRADIOL [Suspect]
     Dosage: UNK
     Dates: start: 20080101, end: 20090101
  6. PROPOXYPHENE NAPSYLATE [Concomitant]
  7. OMEPRAZOLE [Concomitant]
  8. YAZ [Suspect]
  9. CEFACLOR [Concomitant]
  10. YASMIN [Suspect]
     Dosage: UNK
     Dates: start: 20080101, end: 20090101
  11. METHYLPREDNISOLONE [Concomitant]
  12. AMOXICILLIN AND CLAVULANATE POTASSIUM [Concomitant]
  13. IBUPROFEN [Concomitant]
  14. PROMETHAZINE [Concomitant]
  15. LIDOCAINE HCL VISCOUS [Concomitant]
  16. OXYCODONE HCL AND ACETAMINOPHEN [Concomitant]

REACTIONS (3)
  - GALLBLADDER DISORDER [None]
  - SCAR [None]
  - CHOLECYSTITIS CHRONIC [None]
